FAERS Safety Report 8995102 (Version 1)
Quarter: 2012Q4

REPORT INFORMATION
  Report Type: Spontaneous
  Country: US (occurrence: None)
  Receive Date: 20121228
  Receipt Date: 20121228
  Transmission Date: 20130627
  Serious: Yes (Life-Threatening)
  Sender: FDA-Public Use
  Company Number: None

PATIENT
  Age: 79 Year
  Sex: Male
  Weight: 102.6 kg

DRUGS (2)
  1. GLIPIZIDE [Suspect]
     Indication: DIABETES MELLITUS
     Route: 048
     Dates: start: 20100817, end: 20120927
  2. GLIPIZIDE [Suspect]
     Indication: DIABETES MELLITUS

REACTIONS (5)
  - Unresponsive to stimuli [None]
  - Blood glucose decreased [None]
  - Urinary tract infection [None]
  - Fall [None]
  - Head injury [None]
